FAERS Safety Report 5407797-2 (Version None)
Quarter: 2007Q3

REPORT INFORMATION
  Report Type: 
  Country: None (occurrence: None)
  Receive Date: 20070713
  Receipt Date: 20070504
  Transmission Date: 20080115
  Serious: No
  Sender: FDA-Public Use
  Company Number: 2007SP001663

PATIENT
  Age: 51 Year
  Sex: Male
  Weight: 77.1115 kg

DRUGS (3)
  1. LUNESTA [Suspect]
     Indication: INSOMNIA
     Dosage: 2 MG;PRN;ORAL; 6 MG;1X;ORAL
     Route: 048
     Dates: start: 20070503, end: 20070503
  2. LUNESTA [Suspect]
     Indication: INSOMNIA
     Dosage: 2 MG;PRN;ORAL; 6 MG;1X;ORAL
     Route: 048
     Dates: start: 20060101
  3. LUNESTA [Suspect]

REACTIONS (2)
  - INSOMNIA [None]
  - WEIGHT DECREASED [None]
